FAERS Safety Report 13529405 (Version 2)
Quarter: 2017Q2

REPORT INFORMATION
  Report Type: Spontaneous
  Country: US (occurrence: US)
  Receive Date: 20170509
  Receipt Date: 20170509
  Transmission Date: 20170830
  Serious: No
  Sender: FDA-Public Use
  Company Number: US-ROCHE-GNE302104

PATIENT
  Sex: Female
  Weight: 54.93 kg

DRUGS (4)
  1. XOLAIR [Suspect]
     Active Substance: OMALIZUMAB
     Indication: PRODUCT USED FOR UNKNOWN INDICATION
     Dosage: 150 MG, 1/MONTH
     Route: 058
     Dates: start: 20100322
  2. LORATADINE. [Concomitant]
     Active Substance: LORATADINE
     Indication: PRODUCT USED FOR UNKNOWN INDICATION
  3. CHOLESTEROL LOWERING AGENTS [Concomitant]
     Indication: BLOOD CHOLESTEROL INCREASED
  4. BLOOD PRESSURE MEDICATIONS NOS [Concomitant]
     Indication: HYPERTENSION

REACTIONS (1)
  - Somnolence [Unknown]
